FAERS Safety Report 23698381 (Version 1)
Quarter: 2024Q2

REPORT INFORMATION
  Report Type: Spontaneous
  Country: US (occurrence: None)
  Receive Date: 20240402
  Receipt Date: 20240402
  Transmission Date: 20240715
  Serious: Yes (Other)
  Sender: FDA-Public Use
  Company Number: US-ROCHE-3531886

PATIENT

DRUGS (2)
  1. OCREVUS [Suspect]
     Active Substance: OCRELIZUMAB
     Indication: Secondary progressive multiple sclerosis
     Route: 065
     Dates: start: 201905, end: 202302
  2. OFATUMUMAB [Concomitant]
     Active Substance: OFATUMUMAB
     Dates: start: 202307

REACTIONS (2)
  - Breast cancer [Unknown]
  - Therapeutic response decreased [Unknown]
